FAERS Safety Report 9295961 (Version 1)
Quarter: 2013Q2

REPORT INFORMATION
  Report Type: Spontaneous
  Country: GB (occurrence: GB)
  Receive Date: 20130517
  Receipt Date: 20130517
  Transmission Date: 20140414
  Serious: Yes (Other)
  Sender: FDA-Public Use
  Company Number: PHFR2012GB006743

PATIENT
  Sex: Female

DRUGS (2)
  1. CARBAMAZEPINE [Suspect]
     Dosage: 25 MG, BID
  2. CARBAMAZEPINE [Suspect]
     Dosage: 0.25 DF, UNK

REACTIONS (3)
  - Abasia [Unknown]
  - Pain [Unknown]
  - Neuralgia [Unknown]
